FAERS Safety Report 10025364 (Version 1)
Quarter: 2014Q1

REPORT INFORMATION
  Report Type: Report from Study
  Country: ES (occurrence: ES)
  Receive Date: 20140320
  Receipt Date: 20140320
  Transmission Date: 20141002
  Serious: Yes (Hospitalization)
  Sender: FDA-Public Use
  Company Number: ES-GLAXOSMITHKLINE-B0978007A

PATIENT
  Age: 24 Year
  Sex: Female
  Weight: 49 kg

DRUGS (3)
  1. DABRAFENIB [Suspect]
     Indication: METASTATIC MALIGNANT MELANOMA
     Route: 048
  2. TRAMETINIB [Suspect]
     Indication: METASTATIC MALIGNANT MELANOMA
     Route: 048
  3. NAPROXEN [Concomitant]
     Indication: BONE PAIN
     Dosage: 500MG TWICE PER DAY
     Route: 048
     Dates: start: 20131127

REACTIONS (1)
  - Fibrinolysis [Not Recovered/Not Resolved]
